FAERS Safety Report 9439700 (Version 2)
Quarter: 2013Q4

REPORT INFORMATION
  Report Type: Spontaneous
  Country: US (occurrence: US)
  Receive Date: 20130805
  Receipt Date: 20131003
  Transmission Date: 20140711
  Serious: No
  Sender: FDA-Public Use
  Company Number: US-PFIZER INC-2013224396

PATIENT
  Age: 60 Year
  Sex: Female
  Weight: 98.41 kg

DRUGS (18)
  1. SUTENT [Suspect]
     Indication: PANCREATIC NEUROENDOCRINE TUMOUR METASTATIC
     Dosage: 12.5 MG, UNK
     Dates: start: 20130710
  2. SUTENT [Suspect]
     Dosage: 37.5 MG, DAILY
     Dates: start: 20130704
  3. ALOE BARBADENSIS [Concomitant]
     Dosage: UNK
  4. ASPIRIN [Concomitant]
     Dosage: UNK
  5. ATORVASTATIN CALCIUM [Concomitant]
     Dosage: 20 MG DAILY
  6. CLOBETA [Concomitant]
     Dosage: UNK
  7. DICYCLOMINE HYDROCHLORIDE [Concomitant]
     Dosage: 20 MG TWICE DAILY
  8. DIOVAN HCT [Concomitant]
     Dosage: 160/25 DAILY
  9. METOCLOPRAMIDE HYDROCHLORIDE [Concomitant]
     Dosage: 5 TO 10 MG BEFORE MEALS AND AT BEDTIME
  10. PANTOPRAZOLE SODIUM [Concomitant]
     Dosage: UNK
  11. SERTRALINE HYDROCHLORIDE [Concomitant]
     Dosage: 150 EVERY MORNING
  12. TRAZODONE HYDROCHLORIDE [Concomitant]
     Dosage: 75 MG IN THE EVENING
  13. ZOFRAN [Concomitant]
     Dosage: UNK
  14. ASA [Concomitant]
     Dosage: 81 MG, DAILY
  15. PROTONIX [Concomitant]
     Dosage: 40 MG, DAILY
  16. CREON [Concomitant]
     Dosage: 24000 U, (4 CAPSULES WITH EACH MEAL)
  17. ZANTAC [Concomitant]
     Dosage: 150 MG IN THE P.M.
  18. NOVOLOG [Concomitant]
     Dosage: UNK

REACTIONS (15)
  - Palmar-plantar erythrodysaesthesia syndrome [Unknown]
  - Headache [Recovered/Resolved]
  - Pruritus [Unknown]
  - Blood pressure increased [Unknown]
  - Fatigue [Unknown]
  - Back pain [Unknown]
  - Overweight [Unknown]
  - Erythema [Unknown]
  - Gingival pain [Unknown]
  - Flatulence [Unknown]
  - Dysgeusia [Unknown]
  - Diarrhoea [Unknown]
  - Pelvic pain [Unknown]
  - Epistaxis [Unknown]
  - Abdominal pain [Unknown]
